FAERS Safety Report 18690909 (Version 1)
Quarter: 2021Q1

REPORT INFORMATION
  Report Type: Spontaneous
  Country: US (occurrence: US)
  Receive Date: 20210101
  Receipt Date: 20210101
  Transmission Date: 20210419
  Serious: Yes (Other)
  Sender: FDA-Public Use
  Company Number: US-SA-2020SA376291

PATIENT

DRUGS (1)
  1. ZANTAC [Suspect]
     Active Substance: RANITIDINE HYDROCHLORIDE
     Indication: GASTRIC ULCER
     Dosage: 150 MG, QD
     Dates: start: 198906, end: 201812

REACTIONS (3)
  - Renal cancer [Unknown]
  - Lung neoplasm malignant [Unknown]
  - Bladder cancer stage I, with cancer in situ [Unknown]

NARRATIVE: CASE EVENT DATE: 19980101
